FAERS Safety Report 4991345-5 (Version None)
Quarter: 2006Q2

REPORT INFORMATION
  Report Type: 
  Country: None (occurrence: None)
  Receive Date: 20060504
  Receipt Date: 20060427
  Transmission Date: 20061013
  Serious: Yes (Hospitalization)
  Sender: FDA-Public Use
  Company Number: FR-ABBOTT-06P-056-0331870-00

PATIENT

DRUGS (3)
  1. SYNAGIS INJECTION [Suspect]
     Indication: ANTIVIRAL PROPHYLAXIS
     Route: 030
     Dates: start: 20060210, end: 20060210
  2. SYNAGIS INJECTION [Suspect]
     Route: 030
     Dates: start: 20051216, end: 20051216
  3. SYNAGIS INJECTION [Suspect]
     Route: 030
     Dates: start: 20060113, end: 20060113

REACTIONS (1)
  - GASTROENTERITIS [None]
